FAERS Safety Report 5720284-7 (Version None)
Quarter: 2008Q2

REPORT INFORMATION
  Report Type: 
  Country: None (occurrence: None)
  Receive Date: 20080428
  Receipt Date: 20080414
  Transmission Date: 20081010
  Serious: Yes (Other)
  Sender: FDA-Public Use
  Company Number: JP-ROCHE-559814

PATIENT
  Age: 7 Year
  Sex: Female

DRUGS (9)
  1. ISOTRETINOIN [Suspect]
     Indication: DRUG USE FOR UNKNOWN INDICATION
     Dosage: REPORTED AS ^400 MG/M2 (120 MG ORALLY TWICE/DAY)^
     Route: 048
  2. ISOTRETINOIN [Suspect]
     Dosage: 7 DAY COURSE REPORTED AS ^40MG/M2 (10MG CAPSULE ORALLY TWICE/DAY)^
     Route: 048
  3. VINCRISTINE [Concomitant]
     Indication: NEUROBLASTOMA
  4. CYCLOPHOSPHAMIDE [Concomitant]
     Indication: NEUROBLASTOMA
  5. DOXORUBICIN HCL [Concomitant]
     Indication: NEUROBLASTOMA
  6. DOXORUBICIN HCL [Concomitant]
     Dosage: RECEIVED AFTER RELAPSE AT PRIMARY SITE.
  7. CISPLATIN [Concomitant]
  8. ETOPOSIDE [Concomitant]
  9. MELPHALAN [Concomitant]

REACTIONS (2)
  - HYPERCALCAEMIA [None]
  - HYPERTENSION [None]
